FAERS Safety Report 23772749 (Version 1)
Quarter: 2024Q2

REPORT INFORMATION
  Report Type: Spontaneous
  Country: US (occurrence: US)
  Receive Date: 20240423
  Receipt Date: 20240423
  Transmission Date: 20240716
  Serious: No
  Sender: FDA-Public Use
  Company Number: US-HALEON-2166817

PATIENT

DRUGS (2)
  1. SORBITOL\XYLITOL [Suspect]
     Active Substance: SORBITOL\XYLITOL
     Indication: Product used for unknown indication
  2. SODIUM FLUORIDE [Suspect]
     Active Substance: SODIUM FLUORIDE\SODIUM MONOFLUOROPHOSPHATE
     Indication: Product used for unknown indication

REACTIONS (1)
  - Drug ineffective [Unknown]
